FAERS Safety Report 6809947-X (Version None)
Quarter: 2010Q2

REPORT INFORMATION
  Report Type: 
  Country: None (occurrence: None)
  Receive Date: 20100630
  Receipt Date: 20100622
  Transmission Date: 20101027
  Serious: Yes (Hospitalization)
  Sender: FDA-Public Use
  Company Number: A0866565A

PATIENT
  Age: 81 Year
  Sex: Male

DRUGS (5)
  1. ADVAIR DISKUS 100/50 [Suspect]
     Indication: EMPHYSEMA
     Dosage: 1PUFF PER DAY
     Route: 055
     Dates: start: 20020101
  2. ALBUTEROL [Concomitant]
  3. SPIRIVA [Concomitant]
  4. OXYGEN [Concomitant]
  5. C-PAP MACHINE [Concomitant]

REACTIONS (3)
  - CARDIAC DISORDER [None]
  - LUNG DISORDER [None]
  - STAPHYLOCOCCAL INFECTION [None]
